FAERS Safety Report 11400005 (Version 1)
Quarter: 2015Q3

REPORT INFORMATION
  Report Type: Spontaneous
  Country: US (occurrence: US)
  Receive Date: 20150820
  Receipt Date: 20150820
  Transmission Date: 20151125
  Serious: No
  Sender: FDA-Public Use
  Company Number: GXBR2015US001729

PATIENT
  Sex: Male

DRUGS (2)
  1. LEVOTHYROXINE. [Concomitant]
     Active Substance: LEVOTHYROXINE
     Indication: HYPOTHYROIDISM
     Dosage: UNK DF, UNK
     Route: 048
  2. SOLARAZE [Suspect]
     Active Substance: DICLOFENAC SODIUM
     Indication: PRECANCEROUS CELLS PRESENT
     Dosage: APPLY TO AREA ON CHEEK AND FOREHEAD, QD
     Route: 061
     Dates: start: 201503

REACTIONS (1)
  - Drug ineffective [Not Recovered/Not Resolved]
